FAERS Safety Report 14688747 (Version 1)
Quarter: 2018Q1

REPORT INFORMATION
  Report Type: Spontaneous
  Country: US (occurrence: US)
  Receive Date: 20180326
  Receipt Date: 20180326
  Transmission Date: 20180509
  Serious: No
  Sender: FDA-Public Use
  Company Number: None

PATIENT
  Age: 55 Year
  Sex: Female

DRUGS (1)
  1. CAPECITABINE TAB 500 MG [Suspect]
     Active Substance: CAPECITABINE

REACTIONS (5)
  - Erythema [None]
  - Palmar-plantar erythrodysaesthesia syndrome [None]
  - Tenderness [None]
  - Skin exfoliation [None]
  - Hair growth rate abnormal [None]

NARRATIVE: CASE EVENT DATE: 20180326
